FAERS Safety Report 5796951-6 (Version None)
Quarter: 2008Q2

REPORT INFORMATION
  Report Type: 
  Country: None (occurrence: None)
  Receive Date: 20080618
  Receipt Date: 20070507
  Transmission Date: 20081010
  Serious: Yes (Other)
  Sender: FDA-Public Use
  Company Number: 200712302US

PATIENT
  Age: 53 Year
  Sex: Female
  Weight: 98.63 kg

DRUGS (22)
  1. LANTUS [Suspect]
     Indication: TYPE 1 DIABETES MELLITUS
     Dosage: 15 U Q12H INJ
     Route: 042
     Dates: start: 20030101, end: 20070328
  2. LANTUS [Suspect]
     Indication: TYPE 1 DIABETES MELLITUS
     Dosage: 15 U QPM INJ
     Route: 042
     Dates: start: 20070328, end: 20070328
  3. LANTUS [Suspect]
     Indication: TYPE 1 DIABETES MELLITUS
     Dosage: 15 U AM+PM INJ
     Route: 042
     Dates: start: 20070329
  4. OPTICLIK GREY [Suspect]
     Indication: TYPE 1 DIABETES MELLITUS
  5. OPTICLIK GREY [Suspect]
     Indication: TYPE 1 DIABETES MELLITUS
     Dates: start: 20070101
  6. PROGRAF [Concomitant]
  7. CELLCEPT [Concomitant]
  8. PREDNISONE TAB [Concomitant]
  9. PANTOPRAZOLE SODIUM [Concomitant]
  10. METOPROLOL SUCCINATE [Concomitant]
  11. ASPIRIN 10GR TIMED DISINTEGRATION TAB [Concomitant]
  12. IMDUR [Concomitant]
  13. SENNA ALEXANDRINA (SENOKOT /00142201/) [Concomitant]
  14. CALCIUM CARBONATE [Concomitant]
  15. SIMVASTATIN [Concomitant]
  16. LEVOTHYROXINE SODIUM [Concomitant]
  17. MAGNESIUM SULFATE [Concomitant]
  18. ACTONEL [Concomitant]
  19. ISRADIPINE (DYNACIRC CR) [Concomitant]
  20. ZETIA [Concomitant]
  21. HUMALOG [Concomitant]
  22. PRAVASTATIN SODIUM (PRAVACHOL) [Concomitant]

REACTIONS (6)
  - ASTHENIA [None]
  - BLOOD GLUCOSE FLUCTUATION [None]
  - BLOOD GLUCOSE INCREASED [None]
  - FEELING ABNORMAL [None]
  - HYPOGLYCAEMIA [None]
  - OVERDOSE [None]
